FAERS Safety Report 18014557 (Version 1)
Quarter: 2020Q3

REPORT INFORMATION
  Report Type: Report from Study
  Country: KR (occurrence: KR)
  Receive Date: 20200713
  Receipt Date: 20200713
  Transmission Date: 20201103
  Serious: Yes (Hospitalization)
  Sender: FDA-Public Use
  Company Number: KR-AMGEN-KORNI2020111292

PATIENT
  Age: 58 Year
  Sex: Female

DRUGS (8)
  1. PEGFILGRASTIM [Suspect]
     Active Substance: PEGFILGRASTIM
     Dosage: 6 MG, SINGLE
     Route: 058
     Dates: start: 20200702, end: 20200702
  2. DOXORUBICIN [Concomitant]
     Active Substance: DOXORUBICIN
     Dosage: 89 MG, SINGLE
     Dates: start: 20200701, end: 20200701
  3. PEGFILGRASTIM [Suspect]
     Active Substance: PEGFILGRASTIM
     Indication: BREAST CANCER
     Dosage: 6 MG, SINGLE
     Route: 058
     Dates: start: 20200610, end: 20200610
  4. CYCLOPHOSPHAMIDE. [Concomitant]
     Active Substance: CYCLOPHOSPHAMIDE
     Dosage: 894 MG, SINGLE
     Dates: start: 20200610, end: 20200610
  5. DOXORUBICIN [Concomitant]
     Active Substance: DOXORUBICIN
     Dosage: 89 MG, SINGLE
     Dates: start: 20200610, end: 20200610
  6. CYCLOPHOSPHAMIDE. [Concomitant]
     Active Substance: CYCLOPHOSPHAMIDE
     Dosage: 894 MG, SINGLE
     Dates: start: 20200701, end: 20200701
  7. CYCLOPHOSPHAMIDE. [Concomitant]
     Active Substance: CYCLOPHOSPHAMIDE
     Indication: BREAST CANCER
     Dosage: 894 MG, SINGLE
     Dates: start: 20200520, end: 20200520
  8. DOXORUBICIN [Concomitant]
     Active Substance: DOXORUBICIN
     Indication: BREAST CANCER
     Dosage: 89 MG, SINGLE
     Dates: start: 20200520, end: 20200520

REACTIONS (1)
  - Nausea [Recovered/Resolved]

NARRATIVE: CASE EVENT DATE: 20200702
